FAERS Safety Report 24527916 (Version 5)
Quarter: 2024Q4

REPORT INFORMATION
  Report Type: Report from Study
  Country: DE (occurrence: DE)
  Receive Date: 20241021
  Receipt Date: 20241126
  Transmission Date: 20250114
  Serious: Yes (Hospitalization, Other)
  Sender: ABBVIE
  Company Number: DE-ABBVIE-5931318

PATIENT
  Age: 66 Year
  Sex: Male

DRUGS (6)
  1. FOSCARBIDOPA\FOSLEVODOPA [Suspect]
     Active Substance: FOSCARBIDOPA\FOSLEVODOPA
     Indication: Parkinson^s disease
     Dosage: CRN: 0.26 ML/H, CR: 0.40 ML/H, ED: 0.15 ML, LAST DOSE ADMINISTERED: 2024
     Route: 058
     Dates: start: 20240701
  2. FOSCARBIDOPA\FOSLEVODOPA [Suspect]
     Active Substance: FOSCARBIDOPA\FOSLEVODOPA
     Dosage: SD: 0.20ML, CRN: 0.26ML/H, CR: 0.40ML/H, ED: 0.15ML  [BLOCKING TIMES: SD 3H, ED 4H]
     Route: 058
     Dates: start: 2024, end: 2024
  3. FOSCARBIDOPA\FOSLEVODOPA [Suspect]
     Active Substance: FOSCARBIDOPA\FOSLEVODOPA
     Dosage: SD: 0.20ML, CRN: 0.26ML/H, CR: 0.40ML/H, ED: 0.15ML  [BLOCKING TIMES: SD 3H, ED 4H]
     Route: 058
     Dates: start: 2024, end: 2024
  4. FOSCARBIDOPA\FOSLEVODOPA [Suspect]
     Active Substance: FOSCARBIDOPA\FOSLEVODOPA
     Dosage: SD: 0.20 ML, CRN: 0.30 ML/H, CR: 0.42 ML/H, CRH: NOT PROGRAMMED, ED: 0.30 ML
     Route: 058
     Dates: start: 2024, end: 2024
  5. FOSCARBIDOPA\FOSLEVODOPA [Suspect]
     Active Substance: FOSCARBIDOPA\FOSLEVODOPA
     Dosage: CRN: 0.36 ML/H, CR: 0.44 ML/H, ED: 0.30 ML
     Route: 058
     Dates: start: 2024
  6. BENSERAZIDE HYDROCHLORIDE\LEVODOPA [Concomitant]
     Active Substance: BENSERAZIDE HYDROCHLORIDE\LEVODOPA
     Indication: Product used for unknown indication

REACTIONS (10)
  - Burning sensation [Not Recovered/Not Resolved]
  - Movement disorder [Not Recovered/Not Resolved]
  - Immobile [Not Recovered/Not Resolved]
  - Dyskinesia [Not Recovered/Not Resolved]
  - Drug ineffective [Unknown]
  - Vision blurred [Not Recovered/Not Resolved]
  - Suicide attempt [Recovered/Resolved]
  - On and off phenomenon [Not Recovered/Not Resolved]
  - On and off phenomenon [Not Recovered/Not Resolved]
  - Feeling of despair [Not Recovered/Not Resolved]

NARRATIVE: CASE EVENT DATE: 20240101
